FAERS Safety Report 15775285 (Version 1)
Quarter: 2018Q4

REPORT INFORMATION
  Report Type: Spontaneous
  Country: FR (occurrence: FR)
  Receive Date: 20181231
  Receipt Date: 20181231
  Transmission Date: 20190205
  Serious: Yes (Hospitalization)
  Sender: FDA-Public Use
  Company Number: FR-ACCORD-098771

PATIENT
  Age: 75 Year
  Sex: Male
  Weight: 84 kg

DRUGS (8)
  1. CARBOPLATIN. [Suspect]
     Active Substance: CARBOPLATIN
     Indication: LUNG ADENOCARCINOMA
     Route: 042
  2. ALMITA [Concomitant]
     Indication: LUNG ADENOCARCINOMA
     Route: 042
  3. SOLUPRED [PREDNISOLONE METASULFOBENZOATE SODIUM] [Concomitant]
     Active Substance: PREDNISOLONE SODIUM METAZOATE
     Indication: PREMEDICATION
     Dosage: ALSO RECEIVED 100 MG FROM 15-FEB-2018  TO 15-FEB-2018
     Route: 042
  4. CHLORHYDRATE D^ONDANSETRON DIHYDRATE [Concomitant]
     Indication: PREMEDICATION
     Route: 042
  5. GLUCOSE/GLUCOSE MONOHYDRATE/GLUCOSE OXIDASE [Concomitant]
     Indication: PREMEDICATION
     Dosage: ALSO RECEIVED 800 MG
     Route: 042
  6. GLUCOSE MONOHYDRATE [Concomitant]
     Active Substance: DEXTROSE MONOHYDRATE
     Indication: PRODUCT USED FOR UNKNOWN INDICATION
     Route: 042
  7. APREPITANT. [Concomitant]
     Active Substance: APREPITANT
     Indication: PREMEDICATION
     Dosage: ALSO RECEIVED 800 MG
     Route: 048
  8. ZOPHREN [Concomitant]
     Active Substance: ONDANSETRON
     Indication: PREMEDICATION
     Dosage: ALSO RECEIVED 8 MG
     Route: 042

REACTIONS (2)
  - Throat tightness [Recovered/Resolved]
  - Erythema [Recovered/Resolved]

NARRATIVE: CASE EVENT DATE: 20180215
